FAERS Safety Report 4867520-7 (Version None)
Quarter: 2005Q4

REPORT INFORMATION
  Report Type: 
  Country: None (occurrence: None)
  Receive Date: 20051222
  Receipt Date: 20051215
  Transmission Date: 20060501
  Serious: Yes (Other)
  Sender: FDA-Public Use
  Company Number: 2005168629

PATIENT
  Age: 3 Year
  Sex: Male

DRUGS (1)
  1. INFANT'S PEDIACARE DECONGESTANT AND COUGH DROPS (PSEUDOEPHEDRINE, DEXT [Suspect]
     Indication: ACCIDENTAL EXPOSURE
     Dosage: 1 (15 ML) BOTTLE ONCE MINUS 2 DROPPERFUL, ORAL
     Route: 048
     Dates: start: 20051215, end: 20051215

REACTIONS (3)
  - ACCIDENTAL DRUG INTAKE BY CHILD [None]
  - EMOTIONAL DISORDER [None]
  - FATIGUE [None]
